FAERS Safety Report 6324806-7 (Version None)
Quarter: 2009Q3

REPORT INFORMATION
  Report Type: 
  Country: None (occurrence: None)
  Receive Date: 20090824
  Receipt Date: 20090626
  Transmission Date: 20100115
  Serious: No
  Sender: FDA-Public Use
  Company Number: US-ABBOTT-09P-163-0582037-00

PATIENT
  Sex: Male
  Weight: 88.984 kg

DRUGS (25)
  1. NIASPAN [Suspect]
     Indication: DRUG USE FOR UNKNOWN INDICATION
     Dates: start: 20090618
  2. IMDUR [Suspect]
     Indication: DRUG USE FOR UNKNOWN INDICATION
  3. IMDUR [Concomitant]
  4. JANUVIA [Concomitant]
     Indication: DRUG USE FOR UNKNOWN INDICATION
  5. PROGRAF [Concomitant]
     Indication: DRUG USE FOR UNKNOWN INDICATION
  6. TEMAZEPAM [Concomitant]
     Indication: DRUG USE FOR UNKNOWN INDICATION
  7. COREG [Concomitant]
     Indication: DRUG USE FOR UNKNOWN INDICATION
  8. CELLCEPT [Concomitant]
     Indication: DRUG USE FOR UNKNOWN INDICATION
  9. ZANTAC [Concomitant]
     Indication: DRUG USE FOR UNKNOWN INDICATION
  10. PLAVIX [Concomitant]
     Indication: DRUG USE FOR UNKNOWN INDICATION
  11. PREDNISONE TAB [Concomitant]
     Indication: DRUG USE FOR UNKNOWN INDICATION
  12. PRAVACHOL [Concomitant]
     Indication: DRUG USE FOR UNKNOWN INDICATION
  13. AMARYL [Concomitant]
     Indication: DRUG USE FOR UNKNOWN INDICATION
  14. MAG OXIDE [Concomitant]
     Indication: DRUG USE FOR UNKNOWN INDICATION
  15. COLESTID [Concomitant]
     Indication: DRUG USE FOR UNKNOWN INDICATION
  16. PERCOCET [Concomitant]
     Indication: DRUG USE FOR UNKNOWN INDICATION
  17. CO Q10 [Concomitant]
     Indication: DRUG USE FOR UNKNOWN INDICATION
  18. MICARDIS [Concomitant]
     Indication: DRUG USE FOR UNKNOWN INDICATION
  19. DITROPAN [Concomitant]
     Indication: DRUG USE FOR UNKNOWN INDICATION
  20. LASIX [Concomitant]
     Indication: DRUG USE FOR UNKNOWN INDICATION
  21. MULTI-VITAMIN [Concomitant]
     Indication: DRUG USE FOR UNKNOWN INDICATION
  22. POTASSIUM CHLORIDE [Concomitant]
     Indication: DRUG USE FOR UNKNOWN INDICATION
  23. FIBERCON [Concomitant]
     Indication: DRUG USE FOR UNKNOWN INDICATION
  24. SELENIUM [Concomitant]
     Indication: DRUG USE FOR UNKNOWN INDICATION
  25. ASPIRIN [Concomitant]
     Indication: DRUG USE FOR UNKNOWN INDICATION

REACTIONS (5)
  - ASTHENIA [None]
  - BLOOD PRESSURE DECREASED [None]
  - FATIGUE [None]
  - FLUSHING [None]
  - HEAT RASH [None]
